FAERS Safety Report 5659605-2 (Version None)
Quarter: 2008Q1

REPORT INFORMATION
  Report Type: 
  Country: None (occurrence: None)
  Receive Date: 20080311
  Receipt Date: 20080306
  Transmission Date: 20080703
  Serious: Yes (Other)
  Sender: FDA-Public Use
  Company Number: US-WYE-H02988508

PATIENT
  Sex: Male
  Weight: 91.2 kg

DRUGS (6)
  1. SIROLIMUS [Suspect]
     Indication: PROPHYLAXIS AGAINST TRANSPLANT REJECTION
     Route: 048
     Dates: start: 20071212, end: 20080205
  2. LIPITOR [Concomitant]
     Dates: start: 20070508
  3. LASIX [Concomitant]
     Indication: OEDEMA
     Dosage: 40 MG PRN TWICE WEEKLY
     Dates: start: 20070220
  4. HYDROCHLOROTHIAZIDE [Concomitant]
     Dates: start: 20070124
  5. ASPIRIN [Concomitant]
     Dates: start: 20061211
  6. ENALAPRIL MALEATE [Concomitant]
     Dosage: UNKNOWN
     Dates: start: 20071224

REACTIONS (1)
  - HEART TRANSPLANT REJECTION [None]
